FAERS Safety Report 23034868 (Version 7)
Quarter: 2024Q2

REPORT INFORMATION
  Report Type: Spontaneous
  Country: US (occurrence: US)
  Receive Date: 20231005
  Receipt Date: 20240430
  Transmission Date: 20240716
  Serious: Yes (Other)
  Sender: FDA-Public Use
  Company Number: US-PFIZER INC-PV202300164183

PATIENT
  Age: 61 Year
  Sex: Female
  Weight: 72.109 kg

DRUGS (2)
  1. IBRANCE [Suspect]
     Active Substance: PALBOCICLIB
     Indication: Breast cancer stage IV
     Dosage: 100 MG
  2. IBRANCE [Suspect]
     Active Substance: PALBOCICLIB
     Dosage: TAKE 1 TABLET (75 MG) ONCE DAILY FOR 14 DAYS ON, THEN 14 DAYS OFF, TAKE WITH FOOD OR WITHOUT FOOD
     Route: 048

REACTIONS (6)
  - Neutropenia [Not Recovered/Not Resolved]
  - Brain operation [Recovered/Resolved]
  - Mastectomy [Unknown]
  - White blood cell count decreased [Unknown]
  - Confusional state [Unknown]
  - Off label use [Unknown]

NARRATIVE: CASE EVENT DATE: 20190101
